FAERS Safety Report 15284981 (Version 1)
Quarter: 2018Q3

REPORT INFORMATION
  Report Type: Report from Study
  Country: MX (occurrence: MX)
  Receive Date: 20180816
  Receipt Date: 20180816
  Transmission Date: 20181010
  Serious: Yes (Death)
  Sender: FDA-Public Use
  Company Number: MX-INCYTE CORPORATION-2018IN007822

PATIENT

DRUGS (10)
  1. ZYLOPRIM [Concomitant]
     Active Substance: ALLOPURINOL
     Indication: BLOOD URIC ACID
     Dosage: 1 DF, QD
     Route: 048
     Dates: start: 2016
  2. COLCHICINA [Concomitant]
     Active Substance: COLCHICINE
     Indication: BLOOD URIC ACID
     Dosage: 1 DF, QD
     Route: 048
     Dates: start: 2001
  3. JAKAVI [Suspect]
     Active Substance: RUXOLITINIB
     Indication: THROMBOCYTOPENIA
     Dosage: 20 MG, QD (1 OR 2)
     Route: 048
     Dates: end: 2016
  4. SOLORO 7 [Concomitant]
     Indication: PAIN
     Dosage: 1/2, QW
     Route: 061
  5. ZYLOPRIM [Concomitant]
     Active Substance: ALLOPURINOL
     Indication: GOUT
  6. TRADOL [Concomitant]
     Active Substance: TRAMADOL HYDROCHLORIDE
     Indication: HEPATIC PAIN
  7. TAFIROL [Concomitant]
     Indication: PAIN
     Dosage: 1 DF, TID
     Route: 048
  8. HYDREA [Concomitant]
     Active Substance: HYDROXYUREA
     Indication: THROMBOCYTOPENIA
     Dosage: 1 DF, QD
     Route: 048
     Dates: start: 2015, end: 2016
  9. TRADOL [Concomitant]
     Active Substance: TRAMADOL HYDROCHLORIDE
     Indication: ABDOMINAL PAIN
     Dosage: UNK UNK, QD (8 TO 10)
     Route: 048
  10. TEMERIT [Concomitant]
     Active Substance: NEBIVOLOL
     Indication: HYPERTENSION
     Dosage: 1/0 (IN THE MORNING)
     Route: 048
     Dates: start: 2012

REACTIONS (4)
  - Gout [Not Recovered/Not Resolved]
  - Thrombocytopenia [Fatal]
  - Inappropriate schedule of drug administration [Unknown]
  - Hypertension [Fatal]

NARRATIVE: CASE EVENT DATE: 2016
